FAERS Safety Report 4778950-6 (Version None)
Quarter: 2005Q3

REPORT INFORMATION
  Report Type: 
  Country: None (occurrence: None)
  Receive Date: 20050922
  Receipt Date: 20040719
  Transmission Date: 20060218
  Serious: No
  Sender: FDA-Public Use
  Company Number: 2004-118670-NL

PATIENT
  Age: 60 Year
  Sex: Female

DRUGS (1)
  1. MIRTAZAPINE [Suspect]
     Indication: DEPRESSION
     Dosage: 30 MG
     Route: 048
     Dates: start: 20040405, end: 20040603

REACTIONS (3)
  - ARTHRALGIA [None]
  - MYALGIA [None]
  - SUICIDAL IDEATION [None]
